FAERS Safety Report 22119246 (Version 2)
Quarter: 2023Q1

REPORT INFORMATION
  Report Type: Report from Study
  Country: US (occurrence: US)
  Receive Date: 20230321
  Receipt Date: 20230323
  Transmission Date: 20230417
  Serious: No
  Sender: FDA-Public Use
  Company Number: US-002147023-NVSC2023US063903

PATIENT
  Age: 58 Year
  Sex: Male
  Weight: 97.506 kg

DRUGS (1)
  1. COSENTYX [Suspect]
     Active Substance: SECUKINUMAB
     Indication: Psoriatic arthropathy
     Dosage: 150 MG, QW
     Route: 030
     Dates: start: 20230308

REACTIONS (1)
  - Fall [Unknown]

NARRATIVE: CASE EVENT DATE: 20230308
